FAERS Safety Report 8105407-7 (Version None)
Quarter: 2012Q1

REPORT INFORMATION
  Report Type: 
  Country: None (occurrence: None)
  Receive Date: 20120201
  Receipt Date: 20120126
  Transmission Date: 20120608
  Serious: Yes (Life-Threatening, Other)
  Sender: FDA-Public Use
  Company Number: US-ROXANE LABORATORIES, INC.-2012-RO-00557RO

PATIENT
  Age: 20 Year
  Sex: Male

DRUGS (4)
  1. RISPERIDONE [Suspect]
     Indication: ABNORMAL BEHAVIOUR
     Dosage: 1.25 MG
  2. FINGOLIMOD [Suspect]
     Indication: MULTIPLE SCLEROSIS RELAPSE
     Route: 048
  3. PREDNISONE TAB [Suspect]
     Indication: MULTIPLE SCLEROSIS RELAPSE
     Route: 048
  4. METHYLPREDNISOLONE [Suspect]
     Indication: MULTIPLE SCLEROSIS RELAPSE
     Dosage: 1 G
     Route: 042

REACTIONS (6)
  - BRADYCARDIA [None]
  - NAUSEA [None]
  - MALAISE [None]
  - CONVULSION [None]
  - MULTIPLE SCLEROSIS RELAPSE [None]
  - CARDIAC ARREST [None]
